FAERS Safety Report 13620381 (Version 1)
Quarter: 2017Q2

REPORT INFORMATION
  Report Type: Spontaneous
  Country: US (occurrence: US)
  Receive Date: 20170607
  Receipt Date: 20170607
  Transmission Date: 20170830
  Serious: Yes (Hospitalization)
  Sender: FDA-Public Use
  Company Number: None

PATIENT
  Sex: Male
  Weight: 77.8 kg

DRUGS (19)
  1. FINASTERIDE. [Concomitant]
     Active Substance: FINASTERIDE
  2. PRAZOSIN. [Concomitant]
     Active Substance: PRAZOSIN
  3. ASPIRIN EC [Concomitant]
     Active Substance: ASPIRIN
  4. ATORVASTATIN [Concomitant]
     Active Substance: ATORVASTATIN
  5. LOSARTAN. [Concomitant]
     Active Substance: LOSARTAN
  6. METFORMIN [Concomitant]
     Active Substance: METFORMIN HYDROCHLORIDE
  7. TAMSULOSIN [Concomitant]
     Active Substance: TAMSULOSIN
  8. TRAZODONE [Concomitant]
     Active Substance: TRAZODONE HYDROCHLORIDE
  9. OMEPRAZOLE. [Concomitant]
     Active Substance: OMEPRAZOLE
  10. POLYETHYLENE GLYCOL [Concomitant]
     Active Substance: POLYETHYLENE GLYCOLS
  11. FERROUS SULFATE. [Concomitant]
     Active Substance: FERROUS SULFATE
  12. MIRTAZAPINE. [Concomitant]
     Active Substance: MIRTAZAPINE
  13. NICOTINE TRANSDERMAL PATCH [Concomitant]
     Active Substance: NICOTINE
  14. INSULIN ASPART [Concomitant]
     Active Substance: INSULIN ASPART
  15. OXYBUTYNIN [Concomitant]
     Active Substance: OXYBUTYNIN
  16. RISPERIDONE. [Concomitant]
     Active Substance: RISPERIDONE
  17. HARVONI [Suspect]
     Active Substance: LEDIPASVIR\SOFOSBUVIR
     Indication: HEPATITIS C
     Dosage: 90-400MG QD PO
     Route: 048
     Dates: start: 20161103, end: 20170126
  18. LANTUS SOLOSTAR [Concomitant]
     Active Substance: INSULIN GLARGINE
  19. HARVONI [Concomitant]
     Active Substance: LEDIPASVIR\SOFOSBUVIR

REACTIONS (10)
  - Musculoskeletal pain [None]
  - Tricuspid valve incompetence [None]
  - Chest pain [None]
  - Electrocardiogram ST segment depression [None]
  - Drug resistance [None]
  - Viral upper respiratory tract infection [None]
  - Ventricular hypokinesia [None]
  - Electrocardiogram T wave inversion [None]
  - Cough [None]
  - Urinary tract infection [None]

NARRATIVE: CASE EVENT DATE: 20170118
